FAERS Safety Report 8373486-8 (Version None)
Quarter: 2012Q2

REPORT INFORMATION
  Report Type: 
  Country: None (occurrence: None)
  Receive Date: 20120521
  Receipt Date: 20110627
  Transmission Date: 20120825
  Serious: No
  Sender: FDA-Public Use
  Company Number: US-TEVA-2011003406

PATIENT
  Sex: Female

DRUGS (1)
  1. TREANDA [Suspect]
     Indication: B-CELL LYMPHOMA
     Route: 041

REACTIONS (2)
  - BLOOD COUNT ABNORMAL [None]
  - FATIGUE [None]
